FAERS Safety Report 5305070-4 (Version None)
Quarter: 2007Q2

REPORT INFORMATION
  Report Type: 
  Country: None (occurrence: None)
  Receive Date: 20070423
  Receipt Date: 20070413
  Transmission Date: 20071010
  Serious: Yes (Hospitalization)
  Sender: FDA-Public Use
  Company Number: JP-PFIZER INC-2006094853

PATIENT
  Age: 86 Year
  Sex: Female
  Weight: 38 kg

DRUGS (7)
  1. NORVASC [Suspect]
     Indication: DRUG USE FOR UNKNOWN INDICATION
     Route: 048
     Dates: start: 20030901, end: 20060714
  2. NIFLAN [Suspect]
     Indication: DRUG USE FOR UNKNOWN INDICATION
     Dosage: FREQ: TID
     Route: 048
     Dates: start: 20050216, end: 20060714
  3. PAROXETINE HYDROCHLORIDE [Suspect]
     Indication: DRUG USE FOR UNKNOWN INDICATION
     Route: 048
     Dates: start: 20050413, end: 20060714
  4. ALUSA [Concomitant]
     Dosage: FREQ:UNKNOWN
     Route: 048
  5. DAI-KENCHU-TO [Concomitant]
     Dosage: FREQ:UNKNOWN
     Route: 048
     Dates: end: 20060714
  6. SLOW-K [Concomitant]
     Dosage: FREQ:UNKNOWN
     Route: 048
     Dates: end: 20060714
  7. OTHER DERMATOLOGICAL PREPARATIONS [Concomitant]
     Dosage: FREQ:UNKNOWN
     Route: 048
     Dates: end: 20060714

REACTIONS (2)
  - EOSINOPHIL COUNT INCREASED [None]
  - PLATELET COUNT DECREASED [None]
